FAERS Safety Report 13603170 (Version 1)
Quarter: 2017Q2

REPORT INFORMATION
  Report Type: Spontaneous
  Country: JP (occurrence: JP)
  Receive Date: 20170601
  Receipt Date: 20170601
  Transmission Date: 20170830
  Serious: Yes (Other)
  Sender: FDA-Public Use
  Company Number: JP-PFIZER INC-2017236802

PATIENT
  Age: 38 Year
  Sex: Female

DRUGS (2)
  1. TRAMCET [Concomitant]
     Active Substance: ACETAMINOPHEN\TRAMADOL
     Dosage: 6 TABLETS, DAILY
  2. LYRICA [Suspect]
     Active Substance: PREGABALIN
     Dosage: 750 MG, DAILY
     Route: 048

REACTIONS (4)
  - Prescribed overdose [Unknown]
  - Cold sweat [Unknown]
  - Hypothermia [Unknown]
  - Hypotension [Unknown]
